FAERS Safety Report 7540366-7 (Version None)
Quarter: 2011Q2

REPORT INFORMATION
  Report Type: 
  Country: None (occurrence: None)
  Receive Date: 20110603
  Receipt Date: 20110518
  Transmission Date: 20111010
  Serious: Yes (Hospitalization)
  Sender: FDA-Public Use
  Company Number: 2011MA006057

PATIENT
  Age: 7 Year
  Sex: Male

DRUGS (4)
  1. BUSULFAN [Concomitant]
  2. PHENYTOIN [Suspect]
  3. CYCLOPHOSPHAMIDE [Concomitant]
  4. HORSE ANTIHYMOCYTE GLOBULIN [Concomitant]

REACTIONS (4)
  - POSTERIOR REVERSIBLE ENCEPHALOPATHY SYNDROME [None]
  - ENCEPHALITIS [None]
  - CONVULSION [None]
  - TOXICITY TO VARIOUS AGENTS [None]
